APPROVED DRUG PRODUCT: PROCHLORPERAZINE
Active Ingredient: PROCHLORPERAZINE EDISYLATE
Strength: EQ 10MG BASE/ML
Dosage Form/Route: CONCENTRATE;ORAL
Application: A087153 | Product #001
Applicant: ALPHARMA US PHARMACEUTICALS DIVISION
Approved: Jun 8, 1982 | RLD: No | RS: No | Type: DISCN